FAERS Safety Report 9460476 (Version 2)
Quarter: 2014Q1

REPORT INFORMATION
  Report Type: Spontaneous
  Country: JP (occurrence: JP)
  Receive Date: 20130815
  Receipt Date: 20140311
  Transmission Date: 20141002
  Serious: Yes (Hospitalization, Other)
  Sender: FDA-Public Use
  Company Number: JP-ELI_LILLY_AND_COMPANY-JP201308003761

PATIENT
  Age: 81 Year
  Sex: Female

DRUGS (2)
  1. ADCIRCA [Suspect]
     Indication: PRODUCT USED FOR UNKNOWN INDICATION
     Dosage: UNK
     Route: 048
     Dates: start: 20130713, end: 20130723
  2. VOLIBRIS [Concomitant]
     Dosage: UNK
     Route: 048
     Dates: start: 20130703, end: 20130723

REACTIONS (2)
  - Cardiac failure congestive [Unknown]
  - Supraventricular tachycardia [Recovered/Resolved]
